FAERS Safety Report 11097247 (Version 4)
Quarter: 2016Q2

REPORT INFORMATION
  Report Type: Spontaneous
  Country: US (occurrence: US)
  Receive Date: 20150507
  Receipt Date: 20160503
  Transmission Date: 20160815
  Serious: Yes (Other)
  Sender: FDA-Public Use
  Company Number: US-PFIZER INC-2015148952

PATIENT
  Age: 78 Year
  Sex: Female

DRUGS (7)
  1. HEPARIN [Concomitant]
     Active Substance: HEPARIN SODIUM
     Route: 058
  2. INSULIN [Concomitant]
     Active Substance: INSULIN NOS
  3. AMLODIPINE [Concomitant]
     Active Substance: AMLODIPINE BESYLATE
  4. ASPIRIN. [Concomitant]
     Active Substance: ASPIRIN
  5. DOCETAXEL. [Suspect]
     Active Substance: DOCETAXEL
     Indication: SARCOMA
     Dosage: UNK, CYCLIC
  6. GEMCITABINE HYDROCHLORIDE. [Suspect]
     Active Substance: GEMCITABINE HYDROCHLORIDE
     Indication: SARCOMA
     Dosage: UNK, CYCLIC
  7. LISINOPRIL. [Concomitant]
     Active Substance: LISINOPRIL

REACTIONS (2)
  - Choroidal effusion [Recovering/Resolving]
  - Retinal disorder [Recovering/Resolving]
